FAERS Safety Report 9838302 (Version 1)
Quarter: 2013Q4

REPORT INFORMATION
  Report Type: Spontaneous
  Country: US (occurrence: None)
  Receive Date: 20131205
  Receipt Date: 20131205
  Transmission Date: 20140711
  Serious: Yes (Other)
  Sender: FDA-Public Use
  Company Number: 163-POMAL-13082292

PATIENT
  Age: 73 Year
  Sex: 0
  Weight: 81.6 kg

DRUGS (6)
  1. POMALYST [Suspect]
     Indication: PLASMA CELL MYELOMA
     Dosage: 4 MG, 1 IN 1 D, PO
     Route: 048
     Dates: start: 201306, end: 2013
  2. VALACYCLOVIR HCL (VALACICLOVIR HYDROCHLORIDE) [Concomitant]
  3. DEXAMETHASONE (DEXAMETHASONE) [Concomitant]
  4. LEXAPRO (ESCITALOPRAM OXALATE) [Concomitant]
  5. CLARITIN (LORATADINE) [Concomitant]
  6. PERCOCET (OXYCOCET) [Concomitant]

REACTIONS (2)
  - Atrial fibrillation [None]
  - Anaemia [None]
